FAERS Safety Report 7931425-5 (Version None)
Quarter: 2011Q4

REPORT INFORMATION
  Report Type: 
  Country: None (occurrence: None)
  Receive Date: 20111121
  Receipt Date: 20111117
  Transmission Date: 20120403
  Serious: Yes (Hospitalization)
  Sender: FDA-Public Use
  Company Number: TR-ABBOTT-11P-161-0872478-00

PATIENT
  Age: 50 Year
  Sex: Female

DRUGS (2)
  1. VALPROATE SODIUM [Suspect]
     Indication: EPILEPSY
     Dosage: DAILY
  2. OXCARBAZEPINE [Suspect]
     Indication: EPILEPSY
     Dosage: DAILY

REACTIONS (5)
  - INAPPROPRIATE ANTIDIURETIC HORMONE SECRETION [None]
  - NAUSEA [None]
  - DIZZINESS [None]
  - HYPONATRAEMIA [None]
  - VOMITING [None]
